FAERS Safety Report 10262145 (Version 2)
Quarter: 2014Q3

REPORT INFORMATION
  Report Type: Report from Study
  Country: US (occurrence: US)
  Receive Date: 20140626
  Receipt Date: 20140718
  Transmission Date: 20150326
  Serious: Yes (Other)
  Sender: FDA-Public Use
  Company Number: US-009507513-1406USA011428

PATIENT

DRUGS (4)
  1. SYLATRON [Suspect]
     Active Substance: PEGINTERFERON ALFA-2B
     Indication: MALIGNANT MELANOMA STAGE IV
  2. HYPERACUTE MELANOMA VACCINE [Suspect]
     Active Substance: DORGENMELTUCEL-L
     Dosage: 50 MILLION CELLS EACH OF HAM1, HAM2 AND HAM3
     Route: 023
  3. HYPERACUTE MELANOMA VACCINE [Suspect]
     Active Substance: DORGENMELTUCEL-L
     Dosage: 150 MILLION CELLS TOTAL
     Route: 023
  4. SYLATRON [Suspect]
     Active Substance: PEGINTERFERON ALFA-2B
     Indication: MELANOMA RECURRENT
     Dosage: 6 UG/KG
     Route: 058

REACTIONS (1)
  - Neutrophil count abnormal [Unknown]
